FAERS Safety Report 18899034 (Version 2)
Quarter: 2021Q1

REPORT INFORMATION
  Report Type: Spontaneous
  Country: AR (occurrence: AR)
  Receive Date: 20210216
  Receipt Date: 20210301
  Transmission Date: 20210420
  Serious: Yes (Hospitalization, Other)
  Sender: FDA-Public Use
  Company Number: AR-GLAXOSMITHKLINE-AR2020245858

PATIENT
  Sex: Female

DRUGS (7)
  1. RELVAR ELLIPTA [Suspect]
     Active Substance: FLUTICASONE FUROATE\VILANTEROL TRIFENATATE
     Dosage: 1 DF, QD(INHALATRION)(184/22 MCG)
     Route: 055
     Dates: start: 202005
  2. OMEPRAZOLE. [Concomitant]
     Active Substance: OMEPRAZOLE
     Indication: PRODUCT USED FOR UNKNOWN INDICATION
     Dosage: UNK
  3. DERRUMAL [Concomitant]
     Indication: PRODUCT USED FOR UNKNOWN INDICATION
     Dosage: 300 MG
  4. RELVAR ELLIPTA [Suspect]
     Active Substance: FLUTICASONE FUROATE\VILANTEROL TRIFENATATE
     Dosage: 1 DF, QD (INHALATION (92/ 22 MCG)
     Route: 055
     Dates: start: 202009
  5. INCRUSE ELLIPTA [Concomitant]
     Active Substance: UMECLIDINIUM BROMIDE
     Indication: PRODUCT USED FOR UNKNOWN INDICATION
     Dosage: 1 DF, QD
     Dates: start: 20210215
  6. T4 [Concomitant]
     Active Substance: LEVOTHYROXINE
     Indication: THYROID DISORDER
     Dosage: UNK (50 MCG)
  7. RELVAR ELLIPTA [Suspect]
     Active Substance: FLUTICASONE FUROATE\VILANTEROL TRIFENATATE
     Indication: BRONCHIECTASIS
     Dosage: 1 DF, QD (INHALATION)
     Route: 055
     Dates: start: 202006

REACTIONS (10)
  - Bronchitis [Unknown]
  - Therapy change [Unknown]
  - Pneumonia [Unknown]
  - Dyspnoea [Not Recovered/Not Resolved]
  - Product storage error [Unknown]
  - Bronchiectasis [Unknown]
  - Intentional product use issue [Unknown]
  - Condition aggravated [Recovered/Resolved]
  - Product use in unapproved indication [Unknown]
  - Product prescribing issue [Unknown]
